FAERS Safety Report 17692485 (Version 1)
Quarter: 2020Q2

REPORT INFORMATION
  Report Type: Spontaneous
  Country: IR (occurrence: IR)
  Receive Date: 20200422
  Receipt Date: 20200422
  Transmission Date: 20200714
  Serious: Yes (Hospitalization)
  Sender: FDA-Public Use
  Company Number: IR-MYLANLABS-2020M1040497

PATIENT
  Age: 68 Year
  Sex: Female

DRUGS (6)
  1. CARVEDILOL. [Concomitant]
     Active Substance: CARVEDILOL
     Indication: PRODUCT USED FOR UNKNOWN INDICATION
     Route: 065
  2. TRIAMTEREN-H [Concomitant]
     Indication: PRODUCT USED FOR UNKNOWN INDICATION
     Route: 065
  3. ASPIRIN                            /00002701/ [Interacting]
     Active Substance: ASPIRIN
     Indication: PRODUCT USED FOR UNKNOWN INDICATION
     Route: 065
  4. L-CARNITINE                        /00878601/ [Concomitant]
     Active Substance: LEVOCARNITINE
     Indication: PRODUCT USED FOR UNKNOWN INDICATION
     Route: 065
  5. METHOTREXATE. [Suspect]
     Active Substance: METHOTREXATE
     Indication: PRODUCT USED FOR UNKNOWN INDICATION
     Dosage: ONE TABLET EACH DAY FOR 1 MONTH
     Route: 065
  6. LOSARTAN. [Concomitant]
     Active Substance: LOSARTAN
     Indication: PRODUCT USED FOR UNKNOWN INDICATION
     Route: 065

REACTIONS (14)
  - Mouth ulceration [Recovering/Resolving]
  - Accidental poisoning [Recovering/Resolving]
  - Lip ulceration [Recovering/Resolving]
  - Mucocutaneous disorder [Recovering/Resolving]
  - Product dispensing error [Unknown]
  - Paraesthesia [Recovering/Resolving]
  - Movement disorder [Recovering/Resolving]
  - Ulcer haemorrhage [Recovering/Resolving]
  - Pancytopenia [Recovering/Resolving]
  - Muscular weakness [Recovering/Resolving]
  - Asthenia [Recovering/Resolving]
  - Labelled drug-drug interaction medication error [Recovering/Resolving]
  - Wrong product administered [Unknown]
  - Palatal ulcer [Recovering/Resolving]
